FAERS Safety Report 5176550-X (Version None)
Quarter: 2006Q4

REPORT INFORMATION
  Report Type: 
  Country: None (occurrence: None)
  Receive Date: 20061215
  Receipt Date: 20061122
  Transmission Date: 20070319
  Serious: Yes (Death, Other)
  Sender: FDA-Public Use
  Company Number: US-PURDUE-USA_2006_0025789

PATIENT
  Age: 0 Month
  Sex: Male

DRUGS (2)
  1. OXYCONTIN [Suspect]
     Indication: DRUG ABUSER
     Dosage: UNK, UNK
     Dates: start: 19970101
  2. ALCOHOL [Suspect]
     Indication: ALCOHOL USE
     Dosage: UNK, UNK

REACTIONS (3)
  - DEATH [None]
  - LOSS OF CONSCIOUSNESS [None]
  - SUBSTANCE ABUSE [None]
